FAERS Safety Report 7835916-7 (Version None)
Quarter: 2011Q4

REPORT INFORMATION
  Report Type: 
  Country: None (occurrence: None)
  Receive Date: 20111024
  Receipt Date: 20101112
  Transmission Date: 20120403
  Serious: No
  Sender: FDA-Public Use
  Company Number: US-ABBOTT-10P-163-0685551-00

PATIENT
  Sex: Female
  Weight: 68.1 kg

DRUGS (1)
  1. LUPRON DEPOT [Suspect]
     Indication: ENDOMETRIOSIS

REACTIONS (8)
  - FEELING ABNORMAL [None]
  - WEIGHT DECREASED [None]
  - HOT FLUSH [None]
  - MALAISE [None]
  - DEPRESSION [None]
  - ANGER [None]
  - DECREASED APPETITE [None]
  - UNEVALUABLE EVENT [None]
